FAERS Safety Report 16423636 (Version 1)
Quarter: 2019Q2

REPORT INFORMATION
  Report Type: Spontaneous
  Country: BR (occurrence: BR)
  Receive Date: 20190613
  Receipt Date: 20190613
  Transmission Date: 20190711
  Serious: Yes (Other)
  Sender: FDA-Public Use
  Company Number: BR-ROCHE-2331155

PATIENT
  Age: 65 Year
  Sex: Female

DRUGS (2)
  1. ZELBORAF [Suspect]
     Active Substance: VEMURAFENIB
     Route: 065
     Dates: start: 2019
  2. ZELBORAF [Suspect]
     Active Substance: VEMURAFENIB
     Indication: MALIGNANT MELANOMA
     Route: 065
     Dates: start: 2016

REACTIONS (13)
  - Melanoma recurrent [Unknown]
  - Head deformity [Unknown]
  - Sebaceous gland disorder [Unknown]
  - Tinnitus [Unknown]
  - Alopecia [Unknown]
  - Skin disorder [Not Recovered/Not Resolved]
  - Pruritus [Unknown]
  - Otitis media [Unknown]
  - Bone pain [Unknown]
  - Acne [Unknown]
  - Lymphadenopathy [Unknown]
  - Skin hypertrophy [Unknown]
  - Myalgia [Unknown]

NARRATIVE: CASE EVENT DATE: 201903
